FAERS Safety Report 7404642-0 (Version None)
Quarter: 2011Q2

REPORT INFORMATION
  Report Type: 
  Country: None (occurrence: None)
  Receive Date: 20110411
  Receipt Date: 20110331
  Transmission Date: 20111010
  Serious: No
  Sender: FDA-Public Use
  Company Number: US-BIOGENIDEC-2010BI024074

PATIENT
  Age: 39 Year
  Sex: Female

DRUGS (1)
  1. TYSABRI [Suspect]
     Indication: MULTIPLE SCLEROSIS
     Route: 042
     Dates: start: 20100510

REACTIONS (6)
  - FALL [None]
  - EYE INJURY [None]
  - DIZZINESS [None]
  - PAIN IN EXTREMITY [None]
  - CONTUSION [None]
  - UPPER LIMB FRACTURE [None]
